FAERS Safety Report 20931900 (Version 5)
Quarter: 2022Q3

REPORT INFORMATION
  Report Type: Spontaneous
  Country: US (occurrence: None)
  Receive Date: 20220608
  Receipt Date: 20220727
  Transmission Date: 20221027
  Serious: Yes (Other)
  Sender: FDA-Public Use
  Company Number: 2022A204667

PATIENT
  Sex: Male
  Weight: 100.7 kg

DRUGS (1)
  1. BYDUREON BCISE [Suspect]
     Active Substance: EXENATIDE
     Indication: Type 1 diabetes mellitus
     Route: 058

REACTIONS (6)
  - Cataract [Unknown]
  - Visual impairment [Not Recovered/Not Resolved]
  - Drug dose omission by device [Unknown]
  - Product use issue [Unknown]
  - Needle issue [Unknown]
  - Device delivery system issue [Unknown]
